FAERS Safety Report 17964849 (Version 1)
Quarter: 2020Q2

REPORT INFORMATION
  Report Type: Spontaneous
  Country: GR (occurrence: GR)
  Receive Date: 20200630
  Receipt Date: 20200630
  Transmission Date: 20200714
  Serious: Yes (Other)
  Sender: FDA-Public Use
  Company Number: GR-ALLERGAN-2024547US

PATIENT
  Sex: Male

DRUGS (1)
  1. MESALAZINE UNK [Suspect]
     Active Substance: MESALAMINE
     Indication: COLITIS ULCERATIVE
     Dosage: 3 G, QD
     Route: 065

REACTIONS (4)
  - Pseudolymphoma [Unknown]
  - Cutaneous T-cell lymphoma [Unknown]
  - Pruritus [Recovered/Resolved]
  - Rash macular [Recovered/Resolved]
